FAERS Safety Report 19953836 (Version 1)
Quarter: 2021Q4

REPORT INFORMATION
  Report Type: Report from Study
  Country: US (occurrence: US)
  Receive Date: 20211014
  Receipt Date: 20211014
  Transmission Date: 20220303
  Serious: Yes (Death, Other)
  Sender: FDA-Public Use
  Company Number: US-BAYER-2021A226398

PATIENT
  Age: 26 Year
  Sex: Female

DRUGS (1)
  1. ASPIRIN [Suspect]
     Active Substance: ASPIRIN

REACTIONS (5)
  - Overdose [Fatal]
  - Acute kidney injury [None]
  - Tachycardia [None]
  - Depressed level of consciousness [None]
  - Seizure [None]
